FAERS Safety Report 17995283 (Version 1)
Quarter: 2020Q3

REPORT INFORMATION
  Report Type: Spontaneous
  Country: US (occurrence: US)
  Receive Date: 20200708
  Receipt Date: 20200708
  Transmission Date: 20201103
  Serious: No
  Sender: FDA-Public Use
  Company Number: US-BAYER-2020-134752

PATIENT
  Age: 69 Year
  Sex: Male

DRUGS (12)
  1. ENALAPRIL + HIDROCLOROTIAZIDA [Concomitant]
     Active Substance: ENALAPRIL MALEATE\HYDROCHLOROTHIAZIDE
  2. MULTIVITAMINS [VITAMINS NOS] [Concomitant]
     Active Substance: VITAMINS
  3. NUBEQA [Suspect]
     Active Substance: DAROLUTAMIDE
     Indication: PROSTATE CANCER
     Dosage: 600 MG, BID
     Route: 048
  4. METFORMIN HCL [Concomitant]
     Active Substance: METFORMIN HYDROCHLORIDE
  5. ASCORBIC ACID. [Concomitant]
     Active Substance: ASCORBIC ACID
  6. GLIPIZIDE. [Concomitant]
     Active Substance: GLIPIZIDE
  7. LIPITOR ORIFARM [Concomitant]
     Active Substance: ATORVASTATIN CALCIUM
  8. ASPIRIN 81 [Concomitant]
     Active Substance: ASPIRIN
  9. LUPRON DEPOT [Concomitant]
     Active Substance: LEUPROLIDE ACETATE
  10. VITAMIN D3 [Concomitant]
     Active Substance: CHOLECALCIFEROL
  11. FISH OIL [Concomitant]
     Active Substance: FISH OIL
  12. GLUCOSAMINE + CHONDROITIN [CHONDROITIN SULFATE;GLUCOSAMINE] [Concomitant]

REACTIONS (3)
  - Fall [None]
  - Asthenia [None]
  - Bone contusion [Recovered/Resolved]
